FAERS Safety Report 12085668 (Version 4)
Quarter: 2016Q1

REPORT INFORMATION
  Report Type: Spontaneous
  Country: US (occurrence: US)
  Receive Date: 20160217
  Receipt Date: 20160225
  Transmission Date: 20160526
  Serious: Yes (Hospitalization)
  Sender: FDA-Public Use
  Company Number: US-ACTELION-A-US2016-131430

PATIENT
  Age: 45 Year
  Sex: Female

DRUGS (2)
  1. TRACLEER [Suspect]
     Active Substance: BOSENTAN
     Indication: PULMONARY ARTERIAL HYPERTENSION
     Dosage: UNK
     Route: 048
  2. VELETRI [Suspect]
     Active Substance: EPOPROSTENOL
     Indication: PULMONARY ARTERIAL HYPERTENSION
     Dosage: 117 NG/KG, PER MIN
     Route: 042

REACTIONS (7)
  - Headache [Recovering/Resolving]
  - Device malfunction [Recovering/Resolving]
  - Bone pain [Unknown]
  - Nausea [Recovering/Resolving]
  - Device breakage [Recovering/Resolving]
  - Pain [Recovering/Resolving]
  - Catheter site pain [Recovering/Resolving]
